FAERS Safety Report 10220667 (Version 1)
Quarter: 2014Q2

REPORT INFORMATION
  Report Type: Spontaneous
  Country: AU (occurrence: None)
  Receive Date: 20140604
  Receipt Date: 20140604
  Transmission Date: 20141212
  Serious: Yes (Other)
  Sender: FDA-Public Use
  Company Number: FK201402062

PATIENT
  Age: 54 Year
  Sex: Male

DRUGS (4)
  1. FLUDARABINE (MANUFACTURER UNKNOWN) (FLUDARABINE PHOSPHATE) (FLUDARABINE PHOSPHATE) [Suspect]
     Indication: CHRONIC LYMPHOCYTIC LEUKAEMIA
  2. CYCLOPHOSPHAMIDE (MANUFACTURER UNKNOWN) (CYCLOPHOSPHAMIDE) (CYCLOPHOSPHAMIDE) [Suspect]
     Indication: CHRONIC LYMPHOCYTIC LEUKAEMIA
  3. RITUXIMAB (RITUXIMAB) (RITUXIMAB) [Suspect]
     Indication: CHRONIC LYMPHOCYTIC LEUKAEMIA
  4. LENALIDOMIDE (LENALIDOMIDE) (LENALIDOMIDE) [Suspect]
     Indication: CHRONIC LYMPHOCYTIC LEUKAEMIA

REACTIONS (4)
  - Demyelination [None]
  - Erectile dysfunction [None]
  - Urinary hesitation [None]
  - Lhermitte^s sign [None]
